FAERS Safety Report 5170801-3 (Version None)
Quarter: 2006Q4

REPORT INFORMATION
  Report Type: 
  Country: None (occurrence: None)
  Receive Date: 20061206
  Receipt Date: 20061206
  Transmission Date: 20070319
  Serious: Yes (Hospitalization)
  Sender: FDA-Public Use
  Company Number: None

PATIENT
  Age: 50 Year
  Sex: Female

DRUGS (2)
  1. PACLITAXEL [Suspect]
  2. CARBOPLATIN [Suspect]

REACTIONS (4)
  - INFECTION [None]
  - OSTEOMYELITIS [None]
  - SINUS DISORDER [None]
  - STITCH ABSCESS [None]
